FAERS Safety Report 8202982 (Version 5)
Quarter: 2014Q2

REPORT INFORMATION
  Report Type: Spontaneous
  Country: CA (occurrence: CA)
  Receive Date: 20111027
  Receipt Date: 20140430
  Transmission Date: 20141212
  Serious: Yes (Other)
  Sender: FDA-Public Use
  Company Number: CA-GLAXOSMITHKLINE-A0933002A

PATIENT
  Age: 49 Year
  Sex: Female
  Weight: 63.6 kg

DRUGS (8)
  1. ADVAIR [Suspect]
     Indication: ASTHMA
     Dosage: 1PUFF TWICE PER DAY
     Route: 055
     Dates: start: 1983
  2. VENTOLIN [Suspect]
     Indication: DYSPNOEA
     Dosage: 2PUFF FOUR TIMES PER DAY
     Route: 055
  3. MORPHINE [Concomitant]
     Indication: SCOLIOSIS
     Dosage: 75MG THREE TIMES PER DAY
  4. INSULIN [Concomitant]
  5. LORAZEPAM [Concomitant]
     Indication: PANIC ATTACK
     Dosage: 1MG AS REQUIRED
     Route: 065
  6. ZOLOFT [Concomitant]
     Indication: DEPRESSION
     Dosage: 50MG IN THE MORNING
     Route: 065
  7. EPI PEN [Concomitant]
     Indication: MULTIPLE ALLERGIES
  8. RIZATRIPTAN [Concomitant]
     Indication: MIGRAINE
     Dosage: 10MG UNKNOWN
     Route: 065
     Dates: start: 20140414

REACTIONS (24)
  - Discomfort [Not Recovered/Not Resolved]
  - Dyspnoea [Not Recovered/Not Resolved]
  - Gastric disorder [Unknown]
  - Asthma [Recovered/Resolved]
  - Diarrhoea [Recovered/Resolved]
  - Dyspnoea [Not Recovered/Not Resolved]
  - Anxiety [Not Recovered/Not Resolved]
  - Wheezing [Recovering/Resolving]
  - Chest discomfort [Recovered/Resolved]
  - Dizziness [Not Recovered/Not Resolved]
  - Pallor [Not Recovered/Not Resolved]
  - Dysphonia [Not Recovered/Not Resolved]
  - Cough [Not Recovered/Not Resolved]
  - Bone density decreased [Unknown]
  - Heart rate increased [Unknown]
  - Spinal column stenosis [Unknown]
  - Dyspnoea [Unknown]
  - Depressed mood [Unknown]
  - Spinal pain [Unknown]
  - Weight decreased [Unknown]
  - Blood urine present [Unknown]
  - Migraine [Unknown]
  - Malaise [Unknown]
  - Dyspnoea exertional [Unknown]
